FAERS Safety Report 7298568-3 (Version None)
Quarter: 2011Q1

REPORT INFORMATION
  Report Type: 
  Country: None (occurrence: None)
  Receive Date: 20110217
  Receipt Date: 20110208
  Transmission Date: 20110831
  Serious: Yes (Other)
  Sender: FDA-Public Use
  Company Number: FR-JNJFOC-JAFRA2894

PATIENT
  Age: 61 Year
  Sex: Male

DRUGS (3)
  1. MICONAZOLE [Suspect]
     Route: 048
  2. MICONAZOLE [Suspect]
     Indication: ORAL CANDIDIASIS
     Route: 048
  3. ACENOCOUMAROL [Interacting]
     Indication: EMBOLISM ARTERIAL
     Route: 065

REACTIONS (8)
  - DRUG INTERACTION [None]
  - SPONTANEOUS HAEMATOMA [None]
  - ABDOMINAL PAIN LOWER [None]
  - OVERDOSE [None]
  - HAEMATURIA [None]
  - PROTHROMBIN TIME PROLONGED [None]
  - SUBILEUS [None]
  - MENINGEAL DISORDER [None]
